FAERS Safety Report 8446136-X (Version None)
Quarter: 2012Q2

REPORT INFORMATION
  Report Type: 
  Country: None (occurrence: None)
  Receive Date: 20120618
  Receipt Date: 20120608
  Transmission Date: 20120825
  Serious: Yes (Other)
  Sender: FDA-Public Use
  Company Number: CZ-ABBOTT-12P-217-0916432-00

PATIENT
  Age: 51 Year
  Sex: Female
  Weight: 73 kg

DRUGS (11)
  1. REMOOD [Concomitant]
     Indication: DEPRESSION
     Dates: start: 20090101
  2. KETOPROFEN [Concomitant]
     Indication: SPONDYLITIS
     Dates: start: 20100101, end: 20100501
  3. HUMIRA [Suspect]
     Indication: SPONDYLITIS
     Route: 058
     Dates: start: 20100906
  4. SULFASALAZIN EN [Concomitant]
     Dates: start: 20080422, end: 20100602
  5. KETOPROFEN [Concomitant]
     Dates: start: 20100601
  6. OMEPRAZOLE [Concomitant]
     Indication: DYSPEPSIA
     Dates: start: 20061101
  7. HUMIRA [Suspect]
     Route: 058
     Dates: end: 20120305
  8. TRALGIT [Concomitant]
     Indication: SPONDYLITIS
     Dates: start: 20091201
  9. SULFASALAZIN EN [Concomitant]
     Indication: SPONDYLITIS
     Dates: start: 20100603
  10. METOPROLOL TARTRATE [Concomitant]
     Indication: HYPERTENSION
     Dates: start: 20090101
  11. VOLTAREN [Concomitant]
     Indication: SPONDYLITIS
     Dates: start: 20100101

REACTIONS (1)
  - FEMALE REPRODUCTIVE NEOPLASM [None]
